FAERS Safety Report 5606016-1 (Version None)
Quarter: 2008Q1

REPORT INFORMATION
  Report Type: 
  Country: None (occurrence: None)
  Receive Date: 20080123
  Receipt Date: 20080123
  Transmission Date: 20080703
  Serious: Yes (Death)
  Sender: FDA-Public Use
  Company Number: None

PATIENT
  Age: 29 Year
  Sex: Male
  Weight: 104.3273 kg

DRUGS (1)
  1. METHADONE HCL [Suspect]
     Indication: PAIN
     Dosage: 40 MG/DL FOUND IN BLOOD PO;  1.6 MG/KG FOUND IN LIVER
     Route: 048
     Dates: start: 20070803, end: 20070804

REACTIONS (2)
  - DRUG ABUSE [None]
  - SELF-MEDICATION [None]
